FAERS Safety Report 20970410 (Version 1)
Quarter: 2022Q2

REPORT INFORMATION
  Report Type: Spontaneous
  Country: US (occurrence: US)
  Receive Date: 20220616
  Receipt Date: 20220616
  Transmission Date: 20220721
  Serious: No
  Sender: FDA-Public Use
  Company Number: US-SANOFI-01129379

PATIENT
  Age: 74 Year
  Sex: Male

DRUGS (3)
  1. LANTUS [Suspect]
     Active Substance: INSULIN GLARGINE
     Indication: Type 2 diabetes mellitus
     Dosage: UNK, QD (45-48 UNITS)
  2. ADMELOG [Suspect]
     Active Substance: INSULIN LISPRO
     Dosage: UNK
  3. INSULIN NOS [Suspect]
     Active Substance: INSULIN NOS
     Dosage: UNK

REACTIONS (4)
  - Hypersensitivity [Unknown]
  - Blood glucose increased [Unknown]
  - Drug ineffective [Unknown]
  - Product use issue [Unknown]
